FAERS Safety Report 8955419 (Version 5)
Quarter: 2013Q2

REPORT INFORMATION
  Report Type: Spontaneous
  Country: US (occurrence: US)
  Receive Date: 20121207
  Receipt Date: 20130409
  Transmission Date: 20140414
  Serious: No
  Sender: FDA-Public Use
  Company Number: US-VERTEX PHARMACEUTICALS INC.-2012-025536

PATIENT
  Age: 26 Year
  Sex: Female
  Weight: 72 kg

DRUGS (14)
  1. KALYDECO [Suspect]
     Indication: CYSTIC FIBROSIS
     Dosage: 150 MG, BID
     Route: 048
     Dates: start: 20121004, end: 20121104
  2. KALYDECO [Suspect]
     Dosage: 150 MG, QD
     Route: 048
     Dates: start: 20121105, end: 201302
  3. TOBI [Concomitant]
     Dosage: 300 MG, 28 DAYS OFF AND 28 DAYS ON CYCLES
  4. HYPERTONIC SALINE SOLUTION [Concomitant]
     Dosage: 7 %, BID
  5. MIRALAX [Concomitant]
     Dosage: 7 G, QD, PRN
  6. ZENPEP [Concomitant]
     Dosage: 20000 UNITS, 3-4 CAPSULES
  7. HUMALOG [Concomitant]
  8. FLONASE [Concomitant]
     Dosage: 2 SPRAYS EACH NOSTRIL, QD
  9. ADVAIR [Concomitant]
     Dosage: 250/50 MCG 1 PUFF, BID
  10. PULMOZYME [Concomitant]
     Dosage: 2.5 MG, QD
  11. VITAMIN D3 [Concomitant]
     Dosage: 1 UNK, QD
  12. AZITHROMYCIN [Concomitant]
     Dosage: 500 MG, EVERY MONDAY, WEDNESDAY, FRIDAY
  13. PROAIR HFA [Concomitant]
     Dosage: 90 ?G, 2 PUFFS, INHALED 4 TIMES PER DAY PRN
  14. ALBUTEROL [Concomitant]
     Dosage: 2.5 MG, NEBULIZED 1 6HR PRN

REACTIONS (13)
  - Weight increased [Recovered/Resolved]
  - Lethargy [Recovered/Resolved]
  - Sluggishness [Recovered/Resolved]
  - Fatigue [Recovered/Resolved]
  - Spirometry abnormal [Recovered/Resolved]
  - Chest discomfort [Unknown]
  - Somnolence [Unknown]
  - Cough [Unknown]
  - Nasal dryness [Unknown]
  - Blood glucose increased [Unknown]
  - Musculoskeletal discomfort [Unknown]
  - Wheezing [Unknown]
  - Headache [Unknown]
